FAERS Safety Report 9292537 (Version 1)
Quarter: 2013Q1

REPORT INFORMATION
  Report Type: Spontaneous
  Country: US (occurrence: None)
  Receive Date: 20121212
  Receipt Date: 20121212
  Transmission Date: 20140127
  Serious: No
  Sender: FDA-Public Use
  Company Number: 1210USA008826

PATIENT
  Age: 64 Year
  Sex: Male

DRUGS (3)
  1. VICTRELIS [Suspect]
     Indication: HEPATITIS C
     Dosage: 200 MG, 4 CAPSULES THREE TIMES A DAY, ORAL
     Route: 048
     Dates: start: 20120814
  2. PEGASYS [Suspect]
  3. RIBASPHERE [Suspect]

REACTIONS (3)
  - Headache [None]
  - Rash [None]
  - Pruritus [None]
